FAERS Safety Report 16729521 (Version 5)
Quarter: 2021Q3

REPORT INFORMATION
  Report Type: Spontaneous
  Country: US (occurrence: US)
  Receive Date: 20190822
  Receipt Date: 20210811
  Transmission Date: 20211014
  Serious: No
  Sender: FDA-Public Use
  Company Number: US-PFIZER INC-2019359481

PATIENT
  Age: 50 Year
  Sex: Female

DRUGS (1)
  1. LYRICA [Suspect]
     Active Substance: PREGABALIN
     Dosage: UNK

REACTIONS (9)
  - Night sweats [Unknown]
  - Ulcer [Unknown]
  - Nausea [Unknown]
  - Diarrhoea [Unknown]
  - Nasopharyngitis [Unknown]
  - Vertigo [Unknown]
  - Hyperhidrosis [Unknown]
  - Dysphonia [Unknown]
  - Dizziness [Unknown]
